FAERS Safety Report 5696720-1 (Version None)
Quarter: 2008Q2

REPORT INFORMATION
  Report Type: 
  Country: None (occurrence: None)
  Receive Date: 20080408
  Receipt Date: 20080402
  Transmission Date: 20081010
  Serious: Yes (Hospitalization, Disabling, Other)
  Sender: FDA-Public Use
  Company Number: US-MERCK-0707USA02681

PATIENT
  Age: 58 Year
  Sex: Female
  Weight: 58 kg

DRUGS (7)
  1. FOSAMAX [Suspect]
     Indication: OSTEOPOROSIS
     Route: 048
     Dates: start: 20021109, end: 20040102
  2. FOSAMAX [Suspect]
     Route: 048
     Dates: end: 20050427
  3. FOSAMAX [Suspect]
     Route: 048
     Dates: start: 20060615, end: 20070501
  4. COUMADIN [Concomitant]
     Indication: THROMBOSIS
     Route: 065
     Dates: start: 19970101
  5. XANAX [Concomitant]
     Indication: NERVOUSNESS
     Route: 065
     Dates: start: 20010101
  6. XANAX [Concomitant]
     Indication: ANXIETY
     Route: 065
     Dates: start: 20010101
  7. LORTAB [Concomitant]
     Indication: PAIN
     Route: 065
     Dates: start: 19970101

REACTIONS (15)
  - ABDOMINAL PAIN LOWER [None]
  - ABDOMINAL PAIN UPPER [None]
  - ANXIETY [None]
  - ARTHRALGIA [None]
  - ASTHMA [None]
  - DEHYDRATION [None]
  - DERMAL CYST [None]
  - DRUG HYPERSENSITIVITY [None]
  - DRUG INTOLERANCE [None]
  - LOWER RESPIRATORY TRACT INFECTION [None]
  - MAJOR DEPRESSION [None]
  - OSTEOARTHRITIS [None]
  - OSTEONECROSIS [None]
  - UTERINE ENLARGEMENT [None]
  - VIRAL INFECTION [None]
